FAERS Safety Report 5319639-4 (Version None)
Quarter: 2007Q2

REPORT INFORMATION
  Report Type: 
  Country: None (occurrence: None)
  Receive Date: 20070501
  Receipt Date: 20070418
  Transmission Date: 20071010
  Serious: Yes (Hospitalization)
  Sender: FDA-Public Use
  Company Number: 2007BI004026

PATIENT
  Age: 49 Year
  Sex: Male

DRUGS (5)
  1. NATALIZUMAB [Suspect]
     Indication: MULTIPLE SCLEROSIS
     Dosage: 300 MG;QM;IV
     Route: 042
     Dates: start: 20061120
  2. KLONOPIN [Concomitant]
  3. CYMBALTA [Concomitant]
  4. ARICEPT [Concomitant]
  5. TEGRETOL [Concomitant]

REACTIONS (2)
  - DYSPHAGIA [None]
  - GRAND MAL CONVULSION [None]
